FAERS Safety Report 23703093 (Version 3)
Quarter: 2024Q2

REPORT INFORMATION
  Report Type: Report from Study
  Country: US (occurrence: None)
  Receive Date: 20240403
  Receipt Date: 20240522
  Transmission Date: 20240716
  Serious: Yes (Other)
  Sender: FDA-Public Use
  Company Number: 2024A077661

PATIENT
  Age: 811 Month
  Sex: Female
  Weight: 93.9 kg

DRUGS (2)
  1. TEZSPIRE [Suspect]
     Active Substance: TEZEPELUMAB-EKKO
     Indication: Asthma
     Route: 058
  2. BREZTRI [Suspect]
     Active Substance: BUDESONIDE\FORMOTEROL\GLYCOPYRROLATE
     Route: 055

REACTIONS (12)
  - Fall [Unknown]
  - Pulmonary contusion [Unknown]
  - Eosinophil count increased [Unknown]
  - Wheezing [Unknown]
  - Cough [Unknown]
  - Condition aggravated [Unknown]
  - Productive cough [Unknown]
  - Cough [Unknown]
  - Drug ineffective [Unknown]
  - Asthma [Unknown]
  - Blood immunoglobulin E increased [Unknown]
  - Dyspnoea [Unknown]

NARRATIVE: CASE EVENT DATE: 20230901
